FAERS Safety Report 5837156-X (Version None)
Quarter: 2008Q3

REPORT INFORMATION
  Report Type: 
  Country: None (occurrence: None)
  Receive Date: 20080807
  Receipt Date: 20080724
  Transmission Date: 20090109
  Serious: Yes (Other)
  Sender: FDA-Public Use
  Company Number: AU-GENENTECH-265405

PATIENT
  Age: 50 Year

DRUGS (1)
  1. MABTHERA [Suspect]
     Indication: VASCULITIS
     Route: 065

REACTIONS (2)
  - CARDIAC FAILURE [None]
  - PULMONARY FIBROSIS [None]
